FAERS Safety Report 8265697-7 (Version None)
Quarter: 2012Q2

REPORT INFORMATION
  Report Type: 
  Country: None (occurrence: None)
  Receive Date: 20120406
  Receipt Date: 20120323
  Transmission Date: 20120825
  Serious: Yes (Other)
  Sender: FDA-Public Use
  Company Number: BE-WATSON-2012-05194

PATIENT
  Age: 48 Year
  Sex: Male

DRUGS (2)
  1. ANDROCUR [Suspect]
     Indication: PARAPHILIA
     Dosage: UNK
     Route: 065
     Dates: start: 20111201, end: 20120201
  2. TRELSTAR [Suspect]
     Indication: SEXUAL ABUSE
     Dosage: UNK
     Route: 065
     Dates: start: 20111216, end: 20120201

REACTIONS (6)
  - VOMITING [None]
  - DRUG INEFFECTIVE [None]
  - DIZZINESS [None]
  - HYPOTENSION [None]
  - PITUITARY TUMOUR [None]
  - NAUSEA [None]
